FAERS Safety Report 15342217 (Version 1)
Quarter: 2018Q3

REPORT INFORMATION
  Report Type: Spontaneous
  Country: US (occurrence: US)
  Receive Date: 20180902
  Receipt Date: 20180902
  Transmission Date: 20181010
  Serious: No
  Sender: FDA-Public Use
  Company Number: US-JNJFOC-20180806497

PATIENT
  Age: 7 Decade
  Sex: Female
  Weight: 79.83 kg

DRUGS (2)
  1. WOMENS ROGAINE UNSCENTED [Suspect]
     Active Substance: MINOXIDIL
     Indication: ALOPECIA
     Dosage: 1/4 CAPFUL 1X PER DAY
     Route: 061
     Dates: start: 20170525, end: 201805
  2. WOMENS ROGAINE UNSCENTED [Suspect]
     Active Substance: MINOXIDIL
     Indication: ALOPECIA
     Dosage: 1/4 CAPFUL
     Route: 061
     Dates: start: 20180609, end: 20180807

REACTIONS (3)
  - Off label use [Unknown]
  - Alopecia [Not Recovered/Not Resolved]
  - Underdose [Unknown]

NARRATIVE: CASE EVENT DATE: 20170525
